FAERS Safety Report 7243350-6 (Version None)
Quarter: 2011Q1

REPORT INFORMATION
  Report Type: 
  Country: None (occurrence: None)
  Receive Date: 20110125
  Receipt Date: 20110114
  Transmission Date: 20110831
  Serious: Yes (Hospitalization)
  Sender: FDA-Public Use
  Company Number: JP-ELI_LILLY_AND_COMPANY-JP201101004285

PATIENT

DRUGS (2)
  1. GEMCITABINE HYDROCHLORIDE [Suspect]
     Indication: BILE DUCT CANCER
     Dosage: 1000 MG/M2, DAY 1, 8, 15 EVERY 28 DAYS
     Route: 042
     Dates: start: 20100922
  2. OTS102 [Suspect]
     Indication: BILE DUCT CANCER
     Dosage: 2 MG, WEEKLY (1/W)
     Route: 058
     Dates: start: 20100922

REACTIONS (1)
  - CHOLANGITIS [None]
